FAERS Safety Report 6290021-9 (Version None)
Quarter: 2009Q3

REPORT INFORMATION
  Report Type: 
  Country: None (occurrence: None)
  Receive Date: 20090730
  Receipt Date: 20081029
  Transmission Date: 20100115
  Serious: No
  Sender: FDA-Public Use
  Company Number: US-BRISTOL-MYERS SQUIBB COMPANY-14387856

PATIENT
  Age: 1 Month
  Sex: Male
  Weight: 5 kg

DRUGS (1)
  1. COUMADIN [Suspect]
     Route: 050

REACTIONS (1)
  - ABNORMAL FAECES [None]
